FAERS Safety Report 24551438 (Version 1)
Quarter: 2024Q4

REPORT INFORMATION
  Report Type: Spontaneous
  Country: FI (occurrence: FI)
  Receive Date: 20241026
  Receipt Date: 20241026
  Transmission Date: 20250115
  Serious: Yes (Hospitalization, Disabling)
  Sender: ACCORD
  Company Number: FI-EMA-DD-20241004-7482645-102844

PATIENT
  Age: 59 Year
  Sex: Male

DRUGS (3)
  1. ALLOPURINOL [Suspect]
     Active Substance: ALLOPURINOL
     Indication: Gout
     Dosage: STRENGTH: 100 MG
  2. METFORMIN [Suspect]
     Active Substance: METFORMIN HYDROCHLORIDE
     Indication: Product used for unknown indication
     Dosage: STRENGTH: 500 MG, 2+1 TABLET PER DAY
  3. RAMIPRIL [Suspect]
     Active Substance: RAMIPRIL
     Indication: Product used for unknown indication
     Dosage: STRENGTH: 5 MG

REACTIONS (8)
  - Vitamin B12 deficiency [Recovering/Resolving]
  - Polyneuropathy [Recovering/Resolving]
  - Hallucination [Recovered/Resolved]
  - Anaemia macrocytic [Unknown]
  - Disorientation [Recovered/Resolved]
  - Amnesia [Recovered/Resolved]
  - Visual impairment [Unknown]
  - Weight decreased [Unknown]

NARRATIVE: CASE EVENT DATE: 20200101
